FAERS Safety Report 8115403-1 (Version None)
Quarter: 2012Q1

REPORT INFORMATION
  Report Type: 
  Country: None (occurrence: None)
  Receive Date: 20120206
  Receipt Date: 20120206
  Transmission Date: 20120608
  Serious: Yes (Life-Threatening, Other)
  Sender: FDA-Public Use
  Company Number: None

PATIENT
  Age: 49 Year
  Sex: Female
  Weight: 68.038 kg

DRUGS (2)
  1. RIBAVIRIN [Concomitant]
     Indication: HEPATITIS C
     Dosage: 200 MIL ?
     Route: 048
     Dates: start: 20090303, end: 20090303
  2. INTERFERON [Suspect]
     Indication: HEPATITIS C
     Dosage: 1 SHOT, PER VILE
     Route: 058
     Dates: start: 20040603, end: 20041203

REACTIONS (8)
  - CHILLS [None]
  - FATIGUE [None]
  - DRUG TOLERANCE INCREASED [None]
  - DIARRHOEA [None]
  - ALOPECIA [None]
  - DRUG INEFFECTIVE [None]
  - RENAL FAILURE [None]
  - VISUAL IMPAIRMENT [None]
